FAERS Safety Report 7335706-8 (Version None)
Quarter: 2011Q1

REPORT INFORMATION
  Report Type: 
  Country: None (occurrence: None)
  Receive Date: 20110307
  Receipt Date: 20110304
  Transmission Date: 20110831
  Serious: Yes (Other)
  Sender: FDA-Public Use
  Company Number: A0916719A

PATIENT
  Age: 83 Year
  Sex: Female

DRUGS (2)
  1. ASPIRIN [Suspect]
  2. PLAVIX [Suspect]
     Route: 048

REACTIONS (8)
  - CONDITION AGGRAVATED [None]
  - SKIN FRAGILITY [None]
  - SKIN BURNING SENSATION [None]
  - ERYTHEMA [None]
  - SKIN IRRITATION [None]
  - HYPERSENSITIVITY [None]
  - DISCOMFORT [None]
  - SKIN ATROPHY [None]
